FAERS Safety Report 8466987 (Version 3)
Quarter: 2014Q1

REPORT INFORMATION
  Report Type: Spontaneous
  Country: US (occurrence: US)
  Receive Date: 20120320
  Receipt Date: 20140318
  Transmission Date: 20141002
  Serious: Yes (Hospitalization, Other)
  Sender: FDA-Public Use
  Company Number: US-BAYER-2012-023379

PATIENT
  Age: 35 Year
  Sex: Female
  Weight: 67 kg

DRUGS (13)
  1. YASMIN [Suspect]
     Dosage: UNK
     Dates: start: 2010
  2. TETRACYCLINE [Concomitant]
  3. ZOFRAN [Concomitant]
  4. BENTYL [Concomitant]
  5. DILAUDID [Concomitant]
  6. VITAMIN C [Concomitant]
     Dosage: 500 MG, UNK
     Route: 048
     Dates: start: 20110421
  7. TIZANIDINE [Concomitant]
     Dosage: 4MG 1 1/2 TABS
     Route: 048
     Dates: start: 20110421
  8. ZOLPIDEM TARTRATE [Concomitant]
     Dosage: 10 MG, UNK
     Route: 048
     Dates: start: 20110421
  9. TRIAMCINOLONE [Concomitant]
     Dosage: 0.1 %, UNK
     Route: 061
     Dates: start: 20110421
  10. ULTRAM [Concomitant]
     Dosage: 50 MG, UNK
     Route: 048
     Dates: start: 20110421
  11. CIPRO [Concomitant]
     Dosage: 500 MG, UNK
     Route: 048
     Dates: start: 20110421
  12. FLAGYL [Concomitant]
     Dosage: 500 MG, UNK
     Route: 048
     Dates: start: 20110421
  13. TRICYCLEN [Concomitant]

REACTIONS (9)
  - General physical health deterioration [None]
  - Pain [None]
  - Emotional distress [None]
  - Anxiety [None]
  - Cholecystectomy [None]
  - Cholecystitis chronic [None]
  - Biliary dyskinesia [None]
  - Pain [None]
  - Injury [None]
